FAERS Safety Report 4679881-2 (Version None)
Quarter: 2005Q2

REPORT INFORMATION
  Report Type: 
  Country: None (occurrence: None)
  Receive Date: 20050602
  Receipt Date: 20050131
  Transmission Date: 20051028
  Serious: No
  Sender: FDA-Public Use
  Company Number: 395893

PATIENT
  Age: 73 Year
  Sex: Female

DRUGS (13)
  1. AMOXICILLIN AND CLAVULANATE POTASSIUM [Suspect]
     Indication: INFECTED CYST
     Route: 048
     Dates: start: 20050111, end: 20050118
  2. COREG [Suspect]
     Indication: HYPERTENSION
     Dosage: 6.25MG TWICE PER DAY
     Route: 048
  3. LOTREL [Concomitant]
  4. DYNACIRC [Concomitant]
  5. DETROL [Concomitant]
  6. NEXIUM [Concomitant]
  7. PRAVACHOL [Concomitant]
  8. VITAMIN E [Concomitant]
  9. CALCIUM + VITAMIN D [Concomitant]
  10. VIT C TAB [Concomitant]
  11. MULTI-VITAMIN [Concomitant]
  12. ASPIRIN [Concomitant]
  13. GARLIC [Concomitant]

REACTIONS (2)
  - DIARRHOEA [None]
  - LOCAL SWELLING [None]
